FAERS Safety Report 4267042-0 (Version None)
Quarter: 2004Q1

REPORT INFORMATION
  Report Type: 
  Country: None (occurrence: None)
  Receive Date: 20040108
  Receipt Date: 20040106
  Transmission Date: 20041129
  Serious: Yes (Other)
  Sender: FDA-Public Use
  Company Number: GB-BRISTOL-MYERS SQUIBB COMPANY-12469896

PATIENT
  Age: 62 Year
  Sex: Male
  Weight: 73 kg

DRUGS (5)
  1. IRBESARTAN [Suspect]
     Indication: HYPERTENSION
     Dosage: INITIAL DOSE: 150 MG DAILY; DOSAGE INCREASED TO 300 MG DAILY 11/11/2003
     Route: 048
     Dates: end: 20031210
  2. SIMVASTATIN [Concomitant]
     Dosage: LONG TERM (TAKEN FOR }12 MONTHS)
     Route: 048
  3. ACETYLSALICYLIC ACID SRT [Concomitant]
     Dosage: LONG TERM (TAKEN FOR }12 MONTHS)
     Route: 048
  4. FELODIPINE [Concomitant]
     Dosage: LONG TERM (TAKEN FOR }12 MONTHS)
     Route: 048
  5. BENDROFLUAZIDE [Concomitant]
     Dosage: LONG TERM (TAKEN FOR }12 MONTHS)
     Route: 048

REACTIONS (4)
  - CONDITION AGGRAVATED [None]
  - INTERMITTENT CLAUDICATION [None]
  - MEDICATION ERROR [None]
  - PERIPHERAL VASCULAR DISORDER [None]
